FAERS Safety Report 6726088-0 (Version None)
Quarter: 2010Q2

REPORT INFORMATION
  Report Type: 
  Country: None (occurrence: None)
  Receive Date: 20100514
  Receipt Date: 20100427
  Transmission Date: 20101027
  Serious: Yes (Other)
  Sender: FDA-Public Use
  Company Number: JP-GENENTECH-299609

PATIENT
  Age: 74 Year
  Sex: Female

DRUGS (4)
  1. LUCENTIS [Suspect]
     Indication: MACULAR DEGENERATION
     Dosage: 0.05 ML, UNK
     Route: 031
     Dates: start: 20090904
  2. LUCENTIS [Suspect]
     Dosage: 0.05 ML, UNK
     Route: 031
  3. LUCENTIS [Suspect]
     Dosage: 0.05 ML, UNK
     Route: 031
     Dates: start: 20091106
  4. LUCENTIS [Suspect]
     Dosage: 0.05 ML, UNK
     Route: 031
     Dates: start: 20091212

REACTIONS (3)
  - DETACHMENT OF RETINAL PIGMENT EPITHELIUM [None]
  - RETINAL PIGMENT EPITHELIAL TEAR [None]
  - VITREOUS HAEMORRHAGE [None]
